FAERS Safety Report 8046269-6 (Version None)
Quarter: 2012Q1

REPORT INFORMATION
  Report Type: 
  Country: None (occurrence: None)
  Receive Date: 20120113
  Receipt Date: 20120109
  Transmission Date: 20120608
  Serious: Yes (Death, Hospitalization, Other)
  Sender: FDA-Public Use
  Company Number: DK-ROCHE-1029704

PATIENT
  Age: 81 Year
  Sex: Male

DRUGS (5)
  1. PREDNISOLONE [Suspect]
     Indication: SCLERITIS
     Dosage: FROM 100 TO 30 MG DAILY
     Route: 048
  2. RANIBIZUMAB [Concomitant]
     Indication: AGE-RELATED MACULAR DEGENERATION
  3. METHYLPREDNISOLONE [Concomitant]
     Indication: SCLERITIS
     Route: 042
  4. RITUXIMAB [Suspect]
     Indication: SCLERITIS
     Dosage: 1000 MG, Q2WK
  5. PREDNISOLONE [Suspect]
     Route: 048

REACTIONS (9)
  - RESPIRATORY FAILURE [None]
  - PNEUMOCYSTIS JIROVECI PNEUMONIA [None]
  - PNEUMOTHORAX [None]
  - ANURIA [None]
  - HYPOXIA [None]
  - CEREBRAL DISORDER [None]
  - PYREXIA [None]
  - COMA [None]
  - MYOCARDIAL INFARCTION [None]
